FAERS Safety Report 21167148 (Version 1)
Quarter: 2022Q3

REPORT INFORMATION
  Report Type: Spontaneous
  Country: GB (occurrence: GB)
  Receive Date: 20220803
  Receipt Date: 20220803
  Transmission Date: 20221027
  Serious: Yes (Hospitalization, Other)
  Sender: FDA-Public Use
  Company Number: GB-MHRA-MED-202208010739159020-KRQZG

PATIENT
  Age: 59 Year
  Sex: Female
  Weight: 105 kg

DRUGS (2)
  1. OXALIPLATIN [Suspect]
     Active Substance: OXALIPLATIN
     Indication: Gastrointestinal carcinoma
     Dosage: UNK
     Dates: start: 2022
  2. CAPECITABINE [Concomitant]
     Active Substance: CAPECITABINE
     Indication: Gastrointestinal carcinoma
     Dosage: UNK
     Dates: start: 20220707

REACTIONS (16)
  - Medication error [Unknown]
  - Throat tightness [Recovered/Resolved]
  - Throat irritation [Unknown]
  - Aphonia [Unknown]
  - Dysphagia [Unknown]
  - Tremor [Unknown]
  - Oxygen saturation decreased [Unknown]
  - Gait inability [Unknown]
  - Emotional distress [Unknown]
  - Mood altered [Unknown]
  - Dyspnoea [Unknown]
  - Facial paralysis [Unknown]
  - Swollen tongue [Unknown]
  - Hypersensitivity [Unknown]
  - Paraesthesia oral [Unknown]
  - Anaphylactic shock [Unknown]

NARRATIVE: CASE EVENT DATE: 20220728
